FAERS Safety Report 8959765 (Version 1)
Quarter: 2012Q4

REPORT INFORMATION
  Report Type: 
  Country: BR (occurrence: BR)
  Receive Date: 20121212
  Receipt Date: 20121212
  Transmission Date: 20130627
  Serious: Yes (Other)
  Sender: FDA-Public Use
  Company Number: PHHY2012BR113863

PATIENT
  Sex: Male
  Weight: 94 kg

DRUGS (3)
  1. FORASEQ [Suspect]
     Indication: BRONCHIAL DISORDER
     Dosage: 1 DF, QD (12/400 ug, QD)
  2. CRESTOR [Concomitant]
     Dosage: 1 DF, QD
     Route: 048
  3. ECATOR [Concomitant]
     Dosage: 1 DF, QD
     Route: 048

REACTIONS (2)
  - Lung disorder [Recovered/Resolved]
  - Thymoma [Recovered/Resolved]
